FAERS Safety Report 12192806 (Version 2)
Quarter: 2016Q2

REPORT INFORMATION
  Report Type: Report from Study
  Country: US (occurrence: US)
  Receive Date: 20160318
  Receipt Date: 20160603
  Transmission Date: 20160815
  Serious: Yes (Hospitalization)
  Sender: FDA-Public Use
  Company Number: US-ACTELION-A-NJ2016-133134

PATIENT
  Age: 16 Year
  Sex: Male

DRUGS (5)
  1. ONFI [Concomitant]
     Active Substance: CLOBAZAM
     Dosage: 10 MG, UNK
     Dates: start: 20160328
  2. FYCOMPA [Concomitant]
     Active Substance: PERAMPANEL
     Dosage: 10 MG, UNK
     Dates: start: 20160328
  3. LAMICTAL [Concomitant]
     Active Substance: LAMOTRIGINE
     Dosage: 100 MG, UNK
     Dates: start: 20160328
  4. ZAVESCA [Suspect]
     Active Substance: MIGLUSTAT
     Indication: GAUCHER^S DISEASE
     Dosage: 200 MG, TID
     Route: 048
     Dates: start: 20100617
  5. PHENOBARBITAL. [Concomitant]
     Active Substance: PHENOBARBITAL
     Dosage: 100 MG, UNK
     Dates: start: 20160328

REACTIONS (1)
  - Seizure [Unknown]
